FAERS Safety Report 15098860 (Version 1)
Quarter: 2018Q3

REPORT INFORMATION
  Report Type: Spontaneous
  Country: US (occurrence: US)
  Receive Date: 20180702
  Receipt Date: 20180702
  Transmission Date: 20181010
  Serious: Yes (Hospitalization, Other)
  Sender: FDA-Public Use
  Company Number: US-PFIZER INC-2018262226

PATIENT
  Age: 57 Year
  Sex: Female
  Weight: 69.85 kg

DRUGS (2)
  1. XELJANZ XR [Suspect]
     Active Substance: TOFACITINIB CITRATE
     Indication: RHEUMATOID ARTHRITIS
     Dosage: 11 MG, 1X/DAY
     Route: 048
     Dates: start: 201803, end: 201806
  2. PREDNISONE. [Concomitant]
     Active Substance: PREDNISONE
     Indication: ARTHRITIS
     Dosage: 5 MG, 2X/DAY (5MG TABLET ONCE DAILY BY MOUTH, BUT SHE HAS TO DOUBLE IT AND TAKE IT TWICE DAILY)
     Route: 048

REACTIONS (6)
  - Drug ineffective [Unknown]
  - Fall [Not Recovered/Not Resolved]
  - Lower limb fracture [Not Recovered/Not Resolved]
  - Pain in extremity [Unknown]
  - Nightmare [Unknown]
  - Pain [Unknown]

NARRATIVE: CASE EVENT DATE: 20180610
